FAERS Safety Report 7331950-4 (Version None)
Quarter: 2011Q1

REPORT INFORMATION
  Report Type: 
  Country: None (occurrence: None)
  Receive Date: 20110304
  Receipt Date: 20110222
  Transmission Date: 20110831
  Serious: Yes (Life-Threatening)
  Sender: FDA-Public Use
  Company Number: JP-ELI_LILLY_AND_COMPANY-JP201102005696

PATIENT
  Sex: Female
  Weight: 60 kg

DRUGS (6)
  1. PARIET [Concomitant]
     Indication: PROPHYLAXIS AGAINST GASTROINTESTINAL ULCER
     Dosage: 10 MG, DAILY (1/D)
     Route: 048
     Dates: start: 20110211
  2. ASPIRIN [Concomitant]
     Indication: THROMBOSIS PROPHYLAXIS
     Dosage: 100 MG, DAILY (1/D)
     Route: 048
     Dates: start: 20110211
  3. PRASUGREL HYDROCHLORIDE [Suspect]
     Indication: ACUTE CORONARY SYNDROME
     Route: 048
     Dates: start: 20110211
  4. ASPENON [Concomitant]
  5. DIOVAN [Concomitant]
     Indication: HYPERTENSION
     Dosage: 4 MG, DAILY (1/D)
     Route: 048
     Dates: start: 20110211
  6. SIGMART [Concomitant]
     Indication: VASODILATATION
     Dosage: 5 MG, 3/D
     Route: 048
     Dates: start: 20110211

REACTIONS (1)
  - ATRIOVENTRICULAR BLOCK COMPLETE [None]
